FAERS Safety Report 9284484 (Version 5)
Quarter: 2013Q3

REPORT INFORMATION
  Report Type: Spontaneous
  Country: US (occurrence: US)
  Receive Date: 20130510
  Receipt Date: 20130809
  Transmission Date: 20140515
  Serious: Yes (Hospitalization, Other)
  Sender: FDA-Public Use
  Company Number: US-SANOFI-AVENTIS-2013SA046110

PATIENT
  Age: 78 Year
  Sex: Female
  Weight: 92.07 kg

DRUGS (25)
  1. MULTAQ [Suspect]
     Indication: CARDIAC FAILURE CONGESTIVE
     Route: 048
     Dates: start: 20110401, end: 20110808
  2. MULTAQ [Suspect]
     Indication: ATRIAL FIBRILLATION
     Route: 048
     Dates: start: 20110401, end: 20110808
  3. COUMADIN [Concomitant]
  4. TYLENOL [Concomitant]
     Indication: PAIN
  5. LIPITOR [Concomitant]
  6. CLONIDINE [Concomitant]
  7. DIGOXIN [Concomitant]
  8. CARDIZEM [Concomitant]
  9. LASIX [Concomitant]
     Route: 048
  10. SYNTHROID [Concomitant]
     Route: 048
  11. LOPRESSOR [Concomitant]
     Route: 048
  12. PAXIL [Concomitant]
  13. POTASSIUM CHLORIDE [Concomitant]
  14. WARFARIN [Concomitant]
  15. DULCOLAX [Concomitant]
     Dosage: RECTAL SUPPOSITORY?USED AS NEEDED
  16. COLACE [Concomitant]
  17. MAG-OX [Concomitant]
     Route: 048
  18. RIFAXIMIN [Concomitant]
  19. ZOLOFT [Concomitant]
     Route: 048
  20. DELTASONE [Concomitant]
     Route: 048
  21. PRILOSEC [Concomitant]
     Route: 048
  22. IMURAN [Concomitant]
     Route: 048
  23. ALDACTONE [Concomitant]
     Route: 048
  24. ASPIRIN ^BAYER^ [Concomitant]
     Dosage: CHEWABLE TABLET ONCE IN AM
  25. LIPITOR [Concomitant]
     Indication: HYPERLIPIDAEMIA
     Route: 065
     Dates: start: 20110401, end: 20110808

REACTIONS (20)
  - Autoimmune hepatitis [Not Recovered/Not Resolved]
  - Hepatic cirrhosis [Not Recovered/Not Resolved]
  - Urine analysis abnormal [Recovered/Resolved]
  - Renal failure [Recovered/Resolved]
  - Haematemesis [Not Recovered/Not Resolved]
  - Abdominal pain lower [Unknown]
  - Fatigue [Recovered/Resolved]
  - Phlebitis [Unknown]
  - Hepatic failure [Not Recovered/Not Resolved]
  - Malaise [Not Recovered/Not Resolved]
  - International normalised ratio increased [Not Recovered/Not Resolved]
  - Malaise [Not Recovered/Not Resolved]
  - Cardiac failure congestive [Unknown]
  - Jaundice [Unknown]
  - Epistaxis [Not Recovered/Not Resolved]
  - Pain [Not Recovered/Not Resolved]
  - Gait disturbance [Not Recovered/Not Resolved]
  - Headache [Unknown]
  - Sleep disorder [Unknown]
  - Back pain [Unknown]
